FAERS Safety Report 23946518 (Version 9)
Quarter: 2025Q2

REPORT INFORMATION
  Report Type: Report from Study
  Country: CN (occurrence: CN)
  Receive Date: 20240606
  Receipt Date: 20250527
  Transmission Date: 20250716
  Serious: Yes (Hospitalization, Other)
  Sender: PFIZER
  Company Number: CN-TAKEDA-2023TUS105889

PATIENT
  Age: 23 Year
  Sex: Male
  Weight: 102 kg

DRUGS (12)
  1. BRENTUXIMAB VEDOTIN [Suspect]
     Active Substance: BRENTUXIMAB VEDOTIN
     Indication: Hodgkin^s disease
     Dosage: 100 MILLIGRAM, Q3WEEKS
     Route: 041
     Dates: start: 20231025
  2. BRENTUXIMAB VEDOTIN [Suspect]
     Active Substance: BRENTUXIMAB VEDOTIN
     Route: 041
     Dates: start: 20231111
  3. ROXATIDINE ACETATE HYDROCHLORIDE [Concomitant]
     Active Substance: ROXATIDINE ACETATE HYDROCHLORIDE
     Indication: Prophylaxis
     Dosage: 75 MILLIGRAM, BID
     Route: 042
     Dates: start: 20231023, end: 20231027
  4. VITAMINS [Concomitant]
     Active Substance: VITAMINS
     Indication: Vitamin supplementation
     Dosage: UNK UNK, QD
     Route: 042
     Dates: start: 20231023, end: 20231027
  5. SODIUM BICARBONATE [Concomitant]
     Active Substance: SODIUM BICARBONATE
     Indication: Urine alkalinisation therapy
     Dosage: 1 GRAM, TID
     Route: 048
     Dates: start: 20231023, end: 20231027
  6. FEBUXOSTAT [Concomitant]
     Active Substance: FEBUXOSTAT
     Indication: Prophylaxis
     Dosage: 40 MILLIGRAM, QD
     Route: 048
     Dates: start: 20231023, end: 20231027
  7. AMILORIDE [AMILORIDE HYDROCHLORIDE] [Concomitant]
     Indication: Diuretic therapy
     Dosage: UNK UNK, QD
     Route: 048
     Dates: start: 20231023, end: 20231027
  8. SODIUM POTASSIUM MAGNESIUM CALCIUM AND GLUCOSE [Concomitant]
     Indication: Electrolyte substitution therapy
     Dosage: 500 MILLILITER, QD
     Route: 042
     Dates: start: 20231023, end: 20231026
  9. CALCIUM CARBONATE\CHOLECALCIFEROL [Concomitant]
     Active Substance: CALCIUM CARBONATE\CHOLECALCIFEROL
     Indication: Mineral supplementation
     Dosage: UNK UNK, QD
     Route: 048
     Dates: start: 20231023, end: 20231027
  10. DEXAMETHASONE SODIUM PHOSPHATE [Concomitant]
     Active Substance: DEXAMETHASONE SODIUM PHOSPHATE
     Indication: Premedication
     Dosage: 10 MILLIGRAM, QD
     Route: 042
     Dates: start: 20231023, end: 20231025
  11. MAGNESIUM ISOGLYCYRRHIZINATE [Concomitant]
     Active Substance: MAGNESIUM ISOGLYCYRRHIZINATE
     Indication: Prophylaxis
     Dosage: 150 MILLIGRAM, QD
     Route: 042
     Dates: start: 20231023, end: 20231027
  12. GANLIXIN [Concomitant]
     Indication: Prophylaxis

REACTIONS (23)
  - Hepatic function abnormal [Not Recovered/Not Resolved]
  - Hypokalaemia [Recovered/Resolved]
  - Hyperbilirubinaemia [Recovered/Resolved]
  - Staphylococcal sepsis [Recovered/Resolved]
  - Electrocardiogram QT prolonged [Unknown]
  - Alanine aminotransferase increased [Recovered/Resolved]
  - Anaemia [Not Recovered/Not Resolved]
  - Neutrophil count decreased [Recovering/Resolving]
  - Platelet count decreased [Unknown]
  - Ventricular extrasystoles [Recovered/Resolved]
  - Hyponatraemia [Recovered/Resolved]
  - Hypernatraemia [Recovered/Resolved]
  - Blood albumin decreased [Unknown]
  - Hypocalcaemia [Recovered/Resolved]
  - Blood alkaline phosphatase increased [Unknown]
  - Lymphocyte count decreased [Not Recovered/Not Resolved]
  - Hypoalbuminaemia [Recovered/Resolved]
  - White blood cell count decreased [Recovering/Resolving]
  - Aspartate aminotransferase increased [Recovered/Resolved]
  - Blood fibrinogen decreased [Recovered/Resolved]
  - Fibrin D dimer increased [Recovered/Resolved]
  - Insomnia [Not Recovered/Not Resolved]
  - Off label use [Unknown]

NARRATIVE: CASE EVENT DATE: 20231025
